FAERS Safety Report 4555784-9 (Version None)
Quarter: 2005Q1

REPORT INFORMATION
  Report Type: 
  Country: None (occurrence: None)
  Receive Date: 20050112
  Receipt Date: 20040920
  Transmission Date: 20050727
  Serious: Yes (Life-Threatening, Hospitalization, Other)
  Sender: FDA-Public Use
  Company Number: 200420572BWH

PATIENT
  Age: 64 Year
  Sex: Female

DRUGS (2)
  1. CIPRO [Suspect]
     Dosage: ORAL
     Route: 048
     Dates: start: 20040801
  2. ESTRING [Suspect]
     Dosage: VAGINAL
     Route: 067
     Dates: start: 20040801

REACTIONS (2)
  - ANAPHYLACTIC REACTION [None]
  - VAGINAL INFECTION [None]
